FAERS Safety Report 6620871-8 (Version None)
Quarter: 2010Q1

REPORT INFORMATION
  Report Type: 
  Country: None (occurrence: None)
  Receive Date: 20100309
  Receipt Date: 20100217
  Transmission Date: 20100710
  Serious: Yes (Death)
  Sender: FDA-Public Use
  Company Number: JP-SANOFI-AVENTIS-2010SA009567

PATIENT
  Age: 75 Year
  Sex: Male
  Weight: 57.5 kg

DRUGS (8)
  1. PLAVIX [Suspect]
     Indication: ISCHAEMIC CEREBRAL INFARCTION
     Route: 048
     Dates: start: 20070309, end: 20080111
  2. ASPIRIN [Concomitant]
     Indication: ISCHAEMIC CEREBRAL INFARCTION
  3. VALSARTAN [Concomitant]
     Indication: HYPERTENSION
     Route: 048
     Dates: start: 20070211, end: 20080111
  4. LASIX [Concomitant]
     Indication: HYPERTENSION
     Dosage: DOSE: TWICE A DAY; 40 MG IN THE MORNING AND 20 MG AT NOON
     Route: 048
     Dates: start: 20070211, end: 20080111
  5. NOVORAPID [Concomitant]
     Indication: DIABETES MELLITUS
     Dosage: DOSE:5 UNIT(S)
     Route: 051
     Dates: start: 20070211, end: 20080111
  6. NOVORAPID [Concomitant]
     Dosage: DOSE:3 UNIT(S)
     Route: 051
     Dates: start: 20070211, end: 20080111
  7. ALFACALCIDOL [Concomitant]
     Route: 048
     Dates: start: 20070628, end: 20080111
  8. ADONA [Concomitant]
     Route: 048
     Dates: start: 20070509, end: 20080111

REACTIONS (1)
  - PULMONARY CONGESTION [None]
